FAERS Safety Report 21407514 (Version 5)
Quarter: 2023Q1

REPORT INFORMATION
  Report Type: Report from Study
  Country: US (occurrence: US)
  Receive Date: 20221004
  Receipt Date: 20230119
  Transmission Date: 20230418
  Serious: Yes (Other)
  Sender: FDA-Public Use
  Company Number: US-BIOVITRUM-2022US11328

PATIENT
  Sex: Female

DRUGS (4)
  1. KINERET [Suspect]
     Active Substance: ANAKINRA
     Indication: Rheumatoid arthritis
     Dates: start: 20220614
  2. KINERET [Suspect]
     Active Substance: ANAKINRA
     Dates: start: 202205
  3. KINERET [Suspect]
     Active Substance: ANAKINRA
     Dates: start: 20220614
  4. KINERET [Suspect]
     Active Substance: ANAKINRA
     Dosage: 100MG/0.67ML
     Dates: start: 20220607

REACTIONS (12)
  - Rheumatoid arthritis [Unknown]
  - Bursitis [Unknown]
  - Frustration tolerance decreased [Unknown]
  - Illness [Unknown]
  - Amnesia [Unknown]
  - Therapeutic product effect incomplete [Unknown]
  - Weight increased [Unknown]
  - Decreased activity [Unknown]
  - Pain [Unknown]
  - Emotional distress [Unknown]
  - Liquid product physical issue [Unknown]
  - Product dose omission issue [Unknown]
